FAERS Safety Report 5297039-3 (Version None)
Quarter: 2007Q1

REPORT INFORMATION
  Report Type: 
  Country: None (occurrence: None)
  Receive Date: 20070201
  Receipt Date: 20061003
  Transmission Date: 20070707
  Serious: No
  Sender: FDA-Public Use
  Company Number: 2006PV022448

PATIENT
  Age: 63 Year
  Sex: Male
  Weight: 131.5431 kg

DRUGS (2)
  1. BYETTA [Suspect]
     Indication: DIABETES MELLITUS NON-INSULIN-DEPENDENT
     Dosage: 5 MCG; BID; SC
     Route: 058
     Dates: start: 20060901
  2. TRIPLE ANDROGEN BLOCKADE TREATMENT [Concomitant]

REACTIONS (2)
  - INFECTED CYST [None]
  - NAUSEA [None]
